FAERS Safety Report 24202768 (Version 1)
Quarter: 2024Q3

REPORT INFORMATION
  Report Type: Spontaneous
  Country: US (occurrence: None)
  Receive Date: 20240813
  Receipt Date: 20240813
  Transmission Date: 20241017
  Serious: No
  Sender: ENCUBE ETHICALS
  Company Number: US-Encube-001174

PATIENT
  Sex: Female

DRUGS (1)
  1. CICLOPIROX [Suspect]
     Active Substance: CICLOPIROX
     Indication: Onychomycosis
     Dosage: SOLUTION
     Dates: start: 202407

REACTIONS (4)
  - Scratch [Unknown]
  - Poor quality product administered [Unknown]
  - Product container issue [Unknown]
  - Product packaging difficult to open [Unknown]

NARRATIVE: CASE EVENT DATE: 20240701
